FAERS Safety Report 24437912 (Version 4)
Quarter: 2024Q4

REPORT INFORMATION
  Report Type: Spontaneous
  Country: JP (occurrence: JP)
  Receive Date: 20241015
  Receipt Date: 20241023
  Transmission Date: 20250115
  Serious: Yes (Other)
  Sender: ABBVIE
  Company Number: JP-ABBVIE-5959307

PATIENT
  Age: 55 Year
  Sex: Female

DRUGS (2)
  1. UPADACITINIB [Suspect]
     Active Substance: UPADACITINIB
     Indication: Rheumatoid arthritis
     Route: 048
  2. METHOTREXATE [Concomitant]
     Active Substance: METHOTREXATE
     Indication: Rheumatoid arthritis
     Route: 048

REACTIONS (5)
  - Varicella meningitis [Recovered/Resolved]
  - Immunodeficiency [Recovered/Resolved]
  - Viral uveitis [Recovered/Resolved]
  - Ophthalmic herpes zoster [Recovered/Resolved]
  - Varicella zoster virus infection [Recovered/Resolved]
